FAERS Safety Report 14346764 (Version 2)
Quarter: 2018Q1

REPORT INFORMATION
  Report Type: Spontaneous
  Country: FR (occurrence: FR)
  Receive Date: 20180103
  Receipt Date: 20180131
  Transmission Date: 20180509
  Serious: Yes (Death, Life-Threatening, Hospitalization, Other)
  Sender: FDA-Public Use
  Company Number: FR-PFIZER INC-2017550751

PATIENT
  Age: 74 Year
  Sex: Male
  Weight: 60 kg

DRUGS (16)
  1. ALIMTA [Suspect]
     Active Substance: PEMETREXED DISODIUM
     Indication: LUNG ADENOCARCINOMA
     Dosage: 850 MG, CYCLICAL
     Dates: start: 20171004, end: 20171004
  2. CARBOPLATINE HOSPIRA [Suspect]
     Active Substance: CARBOPLATIN
     Dosage: 400 MG, CYCLICAL
     Dates: start: 20171025, end: 20171025
  3. CARBOPLATINE HOSPIRA [Suspect]
     Active Substance: CARBOPLATIN
     Dosage: 315 MG, CYCLICAL
     Dates: start: 20171115, end: 20171115
  4. ALIMTA [Suspect]
     Active Substance: PEMETREXED DISODIUM
     Dosage: 662 MG, CYCLICAL
     Dates: start: 20171115, end: 20171115
  5. SPECIAFOLDINE [Concomitant]
     Active Substance: FOLIC ACID
     Dosage: 1 DF, 1X/DAY
  6. LACRIFLUID [Concomitant]
     Active Substance: CARBOMER
     Dosage: UNK
  7. INNOHEP [Concomitant]
     Active Substance: TINZAPARIN SODIUM
     Dosage: 1 DF, 1X/DAY
     Dates: end: 2017
  8. ALIMTA [Suspect]
     Active Substance: PEMETREXED DISODIUM
     Dosage: 850 MG, CYCLICAL
  9. EUPANTOL [Concomitant]
     Active Substance: PANTOPRAZOLE SODIUM
     Dosage: 1 DF, 1X/DAY (EACH EVENING)
     Route: 048
  10. EPREX [Concomitant]
     Active Substance: ERYTHROPOIETIN
     Dosage: 1 DF, WEEKLY (1/W)
  11. SULFARLEM [Concomitant]
     Active Substance: ANETHOLTRITHION
     Dosage: UNK
  12. LYRICA [Concomitant]
     Active Substance: PREGABALIN
     Dosage: UNK, ALTERNATE DAY (QOD)
  13. CLINUTREN HP ENERGY [Concomitant]
     Dosage: UNK
  14. VITABACT [Concomitant]
     Active Substance: PICLOXYDINE DIHYDROCHLORIDE
     Dosage: UNK
  15. CARBOPLATINE HOSPIRA [Suspect]
     Active Substance: CARBOPLATIN
     Indication: LUNG ADENOCARCINOMA
     Dosage: 615 MG, CYCLICAL
     Dates: start: 20171004, end: 20171004
  16. ALIMTA [Suspect]
     Active Substance: PEMETREXED DISODIUM
     Dosage: 675 MG, CYCLICAL
     Dates: start: 20171025, end: 20171025

REACTIONS (14)
  - Aphthous ulcer [Unknown]
  - Dehydration [Not Recovered/Not Resolved]
  - Respiratory arrest [Unknown]
  - Cerebrovascular accident [Fatal]
  - Mydriasis [Unknown]
  - Product use in unapproved indication [Unknown]
  - Decreased appetite [Not Recovered/Not Resolved]
  - Septic shock [Not Recovered/Not Resolved]
  - Malaise [Not Recovered/Not Resolved]
  - Pancytopenia [Not Recovered/Not Resolved]
  - General physical health deterioration [Not Recovered/Not Resolved]
  - Dyspnoea [Unknown]
  - Clonus [Unknown]
  - Decreased eye contact [Unknown]

NARRATIVE: CASE EVENT DATE: 20171004
